FAERS Safety Report 8042125-8 (Version None)
Quarter: 2012Q1

REPORT INFORMATION
  Report Type: 
  Country: None (occurrence: None)
  Receive Date: 20120112
  Receipt Date: 20120104
  Transmission Date: 20120608
  Serious: Yes (Other)
  Sender: FDA-Public Use
  Company Number: CA-JNJFOC-20120102918

PATIENT
  Sex: Female
  Weight: 73 kg

DRUGS (5)
  1. MELOXICAM [Concomitant]
  2. METHOTREXATE [Concomitant]
  3. REMICADE [Suspect]
     Indication: RHEUMATOID ARTHRITIS
     Route: 042
     Dates: start: 20010530, end: 20111209
  4. FOLIC ACID [Concomitant]
  5. PLAQUENIL [Concomitant]

REACTIONS (4)
  - VULVITIS [None]
  - PNEUMONIA [None]
  - URINARY TRACT INFECTION [None]
  - HERPES VIRUS INFECTION [None]
